FAERS Safety Report 5416282-3 (Version None)
Quarter: 2007Q3

REPORT INFORMATION
  Report Type: 
  Country: None (occurrence: None)
  Receive Date: 20070718
  Receipt Date: 20070430
  Transmission Date: 20080115
  Serious: Yes (Hospitalization, Other)
  Sender: FDA-Public Use
  Company Number: 2007014819

PATIENT
  Age: 23 Year
  Sex: Female

DRUGS (2)
  1. CELEBREX [Suspect]
     Indication: BLOOD GROWTH HORMONE
     Dosage: 800 MG (400 MG, 2 IN 1 D)
     Dates: start: 20061215
  2. THALOMID [Suspect]
     Indication: BRAIN NEOPLASM MALIGNANT
     Dosage: 250 MG (50 MG, 5 DAILY), ORAL
     Route: 048
     Dates: start: 20061215

REACTIONS (2)
  - STEVENS-JOHNSON SYNDROME [None]
  - STOMACH DISCOMFORT [None]
